FAERS Safety Report 4666799-4 (Version None)
Quarter: 2005Q2

REPORT INFORMATION
  Report Type: 
  Country: None (occurrence: None)
  Receive Date: 20050518
  Receipt Date: 20050307
  Transmission Date: 20051028
  Serious: Yes (Other)
  Sender: FDA-Public Use
  Company Number: 2005029952

PATIENT
  Age: 30 Year
  Sex: Female
  Weight: 70.3075 kg

DRUGS (10)
  1. DEPO-PROVERA [Suspect]
     Indication: MIGRAINE
     Dosage: 150 MG (150 MG; Q 3 MO INTERVAL: EVERY 3 MONTHS), INTRAMUSCULAR
     Route: 030
  2. MONTELUKAST SODIUM (MONTELUKAST SODIUM) [Concomitant]
  3. SERTRALINE HCL [Concomitant]
  4. VICODIN (HYDROCODONE BITRATRATE, PARACETAMOL [Concomitant]
  5. LIDOCAINE HYDROCHLORIDE [Concomitant]
  6. ALPRAZOLAM [Concomitant]
  7. MORPHINE [Concomitant]
  8. NEXIUM [Concomitant]
  9. MORPHINE TABLET (MORPHINE HYDROCHLORIDE) [Concomitant]
  10. PHENERGAN [Concomitant]

REACTIONS (1)
  - OSTEOPENIA [None]
